FAERS Safety Report 6612151-1 (Version None)
Quarter: 2010Q1

REPORT INFORMATION
  Report Type: 
  Country: None (occurrence: None)
  Receive Date: 20100302
  Receipt Date: 20100302
  Transmission Date: 20100710
  Serious: No
  Sender: FDA-Public Use
  Company Number: None

PATIENT
  Age: 29 Year
  Sex: Male
  Weight: 102.0593 kg

DRUGS (1)
  1. CIPROFLOXACIN [Suspect]
     Dosage: 1 TBLET 2 TIMES DAILY PO
     Route: 048
     Dates: start: 20100225, end: 20100228

REACTIONS (2)
  - INSOMNIA [None]
  - TENDON PAIN [None]
